FAERS Safety Report 9525449 (Version 1)
Quarter: 2013Q3

REPORT INFORMATION
  Report Type: Spontaneous
  Country: US (occurrence: None)
  Receive Date: 20130912
  Receipt Date: 20130912
  Transmission Date: 20140515
  Serious: Yes (Death, Hospitalization)
  Sender: FDA-Public Use
  Company Number: 2013P1018964

PATIENT
  Age: 45 Year
  Sex: Female

DRUGS (2)
  1. CITALOPRAM [Suspect]
     Indication: DEPRESSION
  2. DIHYDROERGOTAMINE [Suspect]
     Indication: STATUS MIGRAINOSUS
     Route: 042

REACTIONS (5)
  - Status migrainosus [None]
  - Confusional state [None]
  - Cerebral vasoconstriction [None]
  - Cerebral infarction [None]
  - Intracranial pressure increased [None]
